FAERS Safety Report 15718675 (Version 3)
Quarter: 2019Q1

REPORT INFORMATION
  Report Type: Spontaneous
  Country: JP (occurrence: JP)
  Receive Date: 20181213
  Receipt Date: 20190204
  Transmission Date: 20190417
  Serious: Yes (Other)
  Sender: FDA-Public Use
  Company Number: JP-GLAXOSMITHKLINE-JP2018JPN221167

PATIENT
  Age: 74 Year
  Sex: Male

DRUGS (6)
  1. LOSARTAN K TABLETS [Concomitant]
     Dosage: 25 MG, UNK
  2. BAYASPIRIN TABLETS [Concomitant]
     Dosage: 100 MG, UNK
  3. ANORO ELLIPTA [Suspect]
     Active Substance: UMECLIDINIUM BROMIDE\VILANTEROL TRIFENATATE
     Indication: CHRONIC OBSTRUCTIVE PULMONARY DISEASE
  4. NEXIUM CAPSULE [Concomitant]
     Dosage: 10 MG, UNK
  5. PITAVASTATIN CALCIUM OD [Concomitant]
     Dosage: 2 MG, UNK
  6. ANORO ELLIPTA [Suspect]
     Active Substance: UMECLIDINIUM BROMIDE\VILANTEROL TRIFENATATE
     Indication: COUGH
     Dosage: 62.5 ?G, QD
     Route: 055
     Dates: start: 20181107, end: 20181111

REACTIONS (4)
  - Headache [Recovered/Resolved]
  - Malaise [Unknown]
  - Therapy cessation [Unknown]
  - Pneumonia [Recovered/Resolved]

NARRATIVE: CASE EVENT DATE: 20181107
